FAERS Safety Report 25482014 (Version 1)
Quarter: 2025Q2

REPORT INFORMATION
  Report Type: Spontaneous
  Country: RO (occurrence: RO)
  Receive Date: 20250626
  Receipt Date: 20250626
  Transmission Date: 20250717
  Serious: Yes (Death, Other)
  Sender: BRISTOL-MYERS SQUIBB COMPANY
  Company Number: RO-AMGEN-ROUSP2025121332

PATIENT
  Age: 61 Year
  Sex: Male

DRUGS (3)
  1. LENALIDOMIDE [Suspect]
     Active Substance: LENALIDOMIDE
     Indication: Plasma cell myeloma refractory
  2. CARFILZOMIB [Suspect]
     Active Substance: CARFILZOMIB
     Indication: Plasma cell myeloma refractory
  3. DEXAMETHASONE [Suspect]
     Active Substance: DEXAMETHASONE
     Indication: Plasma cell myeloma refractory

REACTIONS (6)
  - Pancytopenia [Unknown]
  - Cardiac arrest [Fatal]
  - Agranulocytosis [Unknown]
  - Syncope [Unknown]
  - Sepsis [Unknown]
  - Inflammatory marker increased [Unknown]

NARRATIVE: CASE EVENT DATE: 20250501
